FAERS Safety Report 12069924 (Version 3)
Quarter: 2016Q1

REPORT INFORMATION
  Report Type: Spontaneous
  Country: US (occurrence: US)
  Receive Date: 20160211
  Receipt Date: 20160219
  Transmission Date: 20160526
  Serious: Yes (Death)
  Sender: FDA-Public Use
  Company Number: US-ROCHE-1709552

PATIENT
  Sex: Male
  Weight: 84.44 kg

DRUGS (20)
  1. COUMADIN [Concomitant]
     Active Substance: WARFARIN SODIUM
  2. ESBRIET [Suspect]
     Active Substance: PIRFENIDONE
     Route: 048
     Dates: start: 20150512, end: 20150623
  3. EFFEXOR XR [Concomitant]
     Active Substance: VENLAFAXINE HYDROCHLORIDE
     Dosage: EXTENDED RELEASE
     Route: 065
     Dates: start: 20150423, end: 20150526
  4. CARBIDOPA. [Concomitant]
     Active Substance: CARBIDOPA
     Dosage: ER
     Route: 065
     Dates: start: 20150423, end: 20150526
  5. COZAAR [Concomitant]
     Active Substance: LOSARTAN POTASSIUM
     Route: 065
     Dates: start: 20150423, end: 20150526
  6. GLIPIZIDE. [Concomitant]
     Active Substance: GLIPIZIDE
     Route: 065
     Dates: start: 20150423, end: 20150526
  7. METOPROLOL TARTRATE. [Concomitant]
     Active Substance: METOPROLOL TARTRATE
     Route: 065
     Dates: start: 20150423, end: 20150526
  8. TAMSULOSIN [Concomitant]
     Active Substance: TAMSULOSIN
     Dosage: EXTENDED RELEASE
     Route: 065
     Dates: start: 20150423, end: 20150526
  9. CIPROFLOXACIN. [Concomitant]
     Active Substance: CIPROFLOXACIN
  10. LEVODOPA [Concomitant]
     Active Substance: LEVODOPA
     Dosage: EXTENDED RELEASE
     Route: 065
     Dates: start: 20150423, end: 20150526
  11. LANTUS SOLOSTAR [Concomitant]
     Active Substance: INSULIN GLARGINE
     Dosage: 100UNIT/ML (3ML)?INSULIN PEN
     Route: 058
  12. PROAIR HFA [Concomitant]
     Active Substance: ALBUTEROL SULFATE
     Dosage: ACTUATION AEROSOL INHALER  (INHALE 2 PUFF BY INHALATION ROUTE EVERY 4-6 HOURS AS NEEDED)
     Route: 065
     Dates: start: 20150519, end: 20150526
  13. ALBUTEROL. [Concomitant]
     Active Substance: ALBUTEROL
     Dosage: INHALER
     Route: 065
  14. ESBRIET [Suspect]
     Active Substance: PIRFENIDONE
     Indication: IDIOPATHIC PULMONARY FIBROSIS
     Dosage: 3 CAPSULES
     Route: 048
     Dates: start: 20150709
  15. ESBRIET [Suspect]
     Active Substance: PIRFENIDONE
     Route: 048
     Dates: start: 20150917, end: 20151014
  16. BRILINTA [Concomitant]
     Active Substance: TICAGRELOR
     Route: 065
     Dates: start: 20150423, end: 20150526
  17. PLAVIX [Concomitant]
     Active Substance: CLOPIDOGREL BISULFATE
     Dosage: CARDIAC
     Route: 065
  18. PANTOPRAZOLE [Concomitant]
     Active Substance: PANTOPRAZOLE SODIUM
     Dosage: DELAYES RELEASE
     Route: 048
     Dates: start: 20150519
  19. ATORVASTATIN [Concomitant]
     Active Substance: ATORVASTATIN
     Route: 065
     Dates: start: 20150423, end: 20150526
  20. FUROSEMIDE. [Concomitant]
     Active Substance: FUROSEMIDE
     Route: 065
     Dates: start: 20150423, end: 20150526

REACTIONS (1)
  - Hypoxia [Fatal]
